FAERS Safety Report 15273717 (Version 2)
Quarter: 2023Q1

REPORT INFORMATION
  Report Type: Spontaneous
  Country: IT (occurrence: IT)
  Receive Date: 20180813
  Receipt Date: 20230125
  Transmission Date: 20230417
  Serious: Yes (Other)
  Sender: FDA-Public Use
  Company Number: PHHY2018IT070498

PATIENT
  Age: 74 Year
  Sex: Female
  Weight: 56 kg

DRUGS (5)
  1. DOCETAXEL [Suspect]
     Active Substance: DOCETAXEL
     Indication: Breast cancer
     Dosage: 100 MG, QW3  DATE OF LAST DOSE ON 17 JAN 2018
     Route: 042
     Dates: start: 20171003
  2. PERTUZUMAB [Suspect]
     Active Substance: PERTUZUMAB
     Indication: Breast cancer
     Dosage: 840 MG, QW3 DATE OF LAST DOSE ON 24 OCT 2017
     Route: 042
     Dates: start: 20171003
  3. TRASTUZUMAB [Suspect]
     Active Substance: TRASTUZUMAB
     Indication: Breast cancer
     Dosage: 440 MG, Q3W (DATE OF LAST DOSE ON 24 OCT 2017)
     Route: 042
     Dates: start: 20171003
  4. FLUCONAZOLE [Concomitant]
     Active Substance: FLUCONAZOLE
     Indication: Stomatitis
     Dosage: UNK
     Route: 065
     Dates: start: 20171227, end: 20180123
  5. ATORVASTATIN [Concomitant]
     Active Substance: ATORVASTATIN
     Indication: Product used for unknown indication
     Dosage: UNK
     Route: 065
     Dates: start: 20040615

REACTIONS (1)
  - Pulmonary embolism [Not Recovered/Not Resolved]

NARRATIVE: CASE EVENT DATE: 20180203
